FAERS Safety Report 4824766-1 (Version None)
Quarter: 2005Q4

REPORT INFORMATION
  Report Type: 
  Country: None (occurrence: None)
  Receive Date: 20051108
  Receipt Date: 20051031
  Transmission Date: 20060501
  Serious: Yes (Hospitalization)
  Sender: FDA-Public Use
  Company Number: CIP05002545

PATIENT
  Age: 80 Year
  Sex: Female

DRUGS (4)
  1. ACTONEL [Suspect]
     Indication: OSTEOPOROSIS
     Dosage: 5 MG DAILY, ORAL
     Route: 048
     Dates: start: 20040201, end: 20041101
  2. PROCYLIN (BERAPROST SODIUM) [Concomitant]
  3. OSTEN (IPRIFLAVONE) [Concomitant]
  4. JUVELA (TOCOPHERYL NICOTINATE) [Concomitant]

REACTIONS (2)
  - INTESTINAL PERFORATION [None]
  - SEPSIS [None]
